FAERS Safety Report 7281814-X (Version None)
Quarter: 2011Q1

REPORT INFORMATION
  Report Type: 
  Country: None (occurrence: None)
  Receive Date: 20110208
  Receipt Date: 20110202
  Transmission Date: 20110831
  Serious: Yes (Death)
  Sender: FDA-Public Use
  Company Number: GB-US-EMD SERONO, INC.-7039334

PATIENT
  Sex: Male

DRUGS (2)
  1. BLOOD PRESSURE TABLETS [Concomitant]
     Indication: HYPERTENSION
  2. REBIF [Suspect]
     Indication: PRODUCT USED FOR UNKNOWN INDICATION
     Dates: start: 20090603

REACTIONS (1)
  - CARDIAC ARREST [None]
